FAERS Safety Report 4429650-3 (Version None)
Quarter: 2004Q3

REPORT INFORMATION
  Report Type: 
  Country: None (occurrence: None)
  Receive Date: 20040819
  Receipt Date: 20020715
  Transmission Date: 20050211
  Serious: Yes (Disabling, Other)
  Sender: FDA-Public Use
  Company Number: US-MERCK-0207USA01394

PATIENT
  Age: 53 Year
  Sex: Female
  Weight: 114 kg

DRUGS (20)
  1. TYLENOL [Concomitant]
     Indication: ARTHRITIS
     Route: 065
     Dates: start: 19990101
  2. COMBIVENT [Concomitant]
     Route: 055
  3. ALLOPURINOL [Concomitant]
     Route: 065
  4. CELEBREX [Concomitant]
     Route: 065
     Dates: start: 20000601
  5. ESTRADIOL [Concomitant]
     Route: 065
  6. GLUCOSAMINE [Concomitant]
     Route: 065
  7. AVALIDE [Concomitant]
     Route: 065
  8. ATROVENT [Concomitant]
     Route: 065
  9. CLARITIN [Concomitant]
     Route: 065
     Dates: start: 19991230
  10. NIFEREX [Concomitant]
     Route: 065
  11. POTASSIUM (UNSPECIFIED) [Concomitant]
     Route: 065
  12. PYRIDOXINE [Concomitant]
     Route: 065
  13. VIOXX [Suspect]
     Indication: FLANK PAIN
     Route: 048
     Dates: start: 19991015, end: 19991020
  14. VIOXX [Suspect]
     Route: 048
     Dates: start: 19991021, end: 20000707
  15. VIOXX [Suspect]
     Indication: ARTHRITIS
     Route: 048
     Dates: start: 19991015, end: 19991020
  16. VIOXX [Suspect]
     Route: 048
     Dates: start: 19991021, end: 20000707
  17. BACTRIM DS [Concomitant]
     Indication: URINARY TRACT INFECTION
     Route: 065
     Dates: start: 19991021
  18. ULTRAM [Concomitant]
     Route: 065
     Dates: start: 19990101
  19. DIOVAN [Concomitant]
     Route: 065
     Dates: start: 19940101, end: 20010101
  20. VITAMIN E [Concomitant]
     Route: 065

REACTIONS (16)
  - ANAEMIA [None]
  - BURSITIS [None]
  - CELLULITIS [None]
  - CHONDROMALACIA [None]
  - CONTUSION [None]
  - DYSPEPSIA [None]
  - EMOTIONAL DISTRESS [None]
  - GASTRIC ULCER [None]
  - GASTRITIS [None]
  - GASTROINTESTINAL HAEMORRHAGE [None]
  - MENISCUS LESION [None]
  - PATELLA FRACTURE [None]
  - PATELLOFEMORAL PAIN SYNDROME [None]
  - PYREXIA [None]
  - THERAPEUTIC RESPONSE DECREASED [None]
  - WOUND INFECTION [None]
